FAERS Safety Report 6713230-0 (Version None)
Quarter: 2010Q2

REPORT INFORMATION
  Report Type: 
  Country: None (occurrence: None)
  Receive Date: 20100506
  Receipt Date: 20100430
  Transmission Date: 20101027
  Serious: Yes (Death, Hospitalization, Other)
  Sender: FDA-Public Use
  Company Number: PHHY2010US27606

PATIENT
  Sex: Male
  Weight: 72 kg

DRUGS (10)
  1. EXJADE [Suspect]
     Indication: ANAEMIA OF CHRONIC DISEASE
     Dosage: 1500 MG, DAILY
     Route: 048
     Dates: start: 20080801
  2. RANEXA [Concomitant]
     Dosage: 500 MG, BID
     Route: 048
  3. NAMENDA [Concomitant]
     Dosage: 5 MG, QD
     Route: 048
  4. METOPROLOL SUCCINATE [Concomitant]
     Dosage: 50 MG, BID
     Route: 048
  5. SIMVASTATIN [Concomitant]
     Dosage: 20 MG, QD
     Route: 048
  6. ISOSORBIDE MONONITRATE [Concomitant]
     Dosage: 120 MG, QD
  7. ARICEPT [Concomitant]
     Dosage: 5 MG, QD
     Route: 048
  8. ACETYLSALICYLIC ACID [Concomitant]
     Dosage: 81 MG, QD
     Route: 048
  9. KEPPRA [Concomitant]
     Dosage: 500 MG, BID
  10. PLAVIX [Concomitant]
     Dosage: 75 MG, QD
     Route: 048

REACTIONS (15)
  - ACUTE MYELOID LEUKAEMIA [None]
  - ANGINA UNSTABLE [None]
  - ATRIAL FIBRILLATION [None]
  - CHEST PAIN [None]
  - CORONARY ARTERY DISEASE [None]
  - DEATH [None]
  - EXTRASYSTOLES [None]
  - GENERAL PHYSICAL HEALTH DETERIORATION [None]
  - LETHARGY [None]
  - LEUKOCYTOSIS [None]
  - LUNG DISORDER [None]
  - MALIGNANT NEOPLASM PROGRESSION [None]
  - OEDEMA PERIPHERAL [None]
  - PALLOR [None]
  - RENAL FAILURE CHRONIC [None]
